FAERS Safety Report 7910359-6 (Version None)
Quarter: 2011Q4

REPORT INFORMATION
  Report Type: 
  Country: None (occurrence: None)
  Receive Date: 20111111
  Receipt Date: 20111104
  Transmission Date: 20120403
  Serious: Yes (Hospitalization, Other)
  Sender: FDA-Public Use
  Company Number: DE-JNJFOC-20110903377

PATIENT
  Sex: Male

DRUGS (4)
  1. TRUXAL [Concomitant]
     Route: 065
  2. XEPILON [Suspect]
     Route: 030
     Dates: start: 20110522
  3. XEPILON [Suspect]
     Indication: SCHIZOPHRENIA, PARANOID TYPE
     Route: 030
  4. RISPERDAL CONSTA [Suspect]
     Indication: PRODUCT USED FOR UNKNOWN INDICATION
     Route: 030

REACTIONS (4)
  - OCULOGYRIC CRISIS [None]
  - PSYCHOTIC DISORDER [None]
  - ACUTE PSYCHOSIS [None]
  - EXTRAPYRAMIDAL DISORDER [None]
